FAERS Safety Report 9553876 (Version 1)
Quarter: 2013Q3

REPORT INFORMATION
  Report Type: Spontaneous
  Country: US (occurrence: None)
  Receive Date: 20130821
  Receipt Date: 20130821
  Transmission Date: 20140515
  Serious: Yes (Other)
  Sender: FDA-Public Use
  Company Number: 1000046362

PATIENT
  Age: 81 Year
  Sex: Female

DRUGS (3)
  1. TUDORZA PRESSAIR (ACLIDINIUM BROMIDE) (400 MICROGRAM, POWDER) [Suspect]
     Indication: CHRONIC OBSTRUCTIVE PULMONARY DISEASE
     Dosage: 800 MCG (400 MCG, 2 IN 1 D) RESPIRATORY (INHALATION)
     Dates: start: 201305
  2. ATENOLOL (ATENOLOL) (ATENOLOL) [Concomitant]
  3. CLOPIDOGREL (CLOPIDOGREL) (CLOPIDOGREL) [Concomitant]

REACTIONS (4)
  - Muscular weakness [None]
  - Tremor [None]
  - Cough [None]
  - Fatigue [None]
